FAERS Safety Report 5491494-1 (Version None)
Quarter: 2007Q4

REPORT INFORMATION
  Report Type: 
  Country: None (occurrence: None)
  Receive Date: 20071022
  Receipt Date: 20071009
  Transmission Date: 20080405
  Serious: Yes (Other)
  Sender: FDA-Public Use
  Company Number: DE-JNJFOC-20070905885

PATIENT
  Age: 5 Year
  Sex: Female

DRUGS (11)
  1. REMICADE [Suspect]
     Dosage: 5-6 MG/KG
     Route: 042
  2. REMICADE [Suspect]
     Dosage: 5-6 MG/KG
     Route: 042
  3. REMICADE [Suspect]
     Dosage: 5-6 MG/KG
     Route: 042
  4. REMICADE [Suspect]
     Dosage: 5-6 MG/KG
     Route: 042
  5. REMICADE [Suspect]
     Indication: UVEITIS
     Dosage: 5-6 MG/KG
     Route: 042
  6. METHOTREXATE [Concomitant]
  7. DECORTIN [Concomitant]
  8. NAPROXEN [Concomitant]
  9. CORTISONE ACETATE TAB [Concomitant]
     Indication: PREMEDICATION
  10. FENISTIL [Concomitant]
     Indication: PREMEDICATION
  11. PREDNISOLONE [Concomitant]
     Indication: PREMEDICATION

REACTIONS (3)
  - ANAPHYLACTIC REACTION [None]
  - CATARACT [None]
  - LYMPHOMA [None]
